FAERS Safety Report 19477871 (Version 2)
Quarter: 2021Q3

REPORT INFORMATION
  Report Type: Spontaneous
  Country: US (occurrence: US)
  Receive Date: 20210630
  Receipt Date: 20210708
  Transmission Date: 20211014
  Serious: Yes (Disabling, Other)
  Sender: FDA-Public Use
  Company Number: US-FRESENIUS KABI-FK202106602

PATIENT
  Age: 69 Year
  Sex: Male
  Weight: 78.47 kg

DRUGS (10)
  1. PYRIDOXINE HYDROCHLORIDE/CHOLINE/THIAMINE HYDROCHLORIDE/CYANOCOBALAMIN/RIBOFLAVIN/NICOTINAMIDE/CALCI [Concomitant]
     Indication: NUTRITIONAL SUPPLEMENTATION
     Dosage: ONGOING
     Route: 065
     Dates: start: 20180117
  2. DEXAMETHASONE. [Concomitant]
     Active Substance: DEXAMETHASONE
     Indication: PRODUCT USED FOR UNKNOWN INDICATION
     Route: 065
     Dates: start: 20200729, end: 20200811
  3. CARFILZOMIB [Concomitant]
     Active Substance: CARFILZOMIB
     Indication: PRODUCT USED FOR UNKNOWN INDICATION
     Dosage: ON DAYS 1, 2, 8, 9, 15, 16 OF A 28 DAY CYCLE
     Route: 042
     Dates: start: 20200729, end: 20200811
  4. CALCIUM CARBONATE. [Concomitant]
     Active Substance: CALCIUM CARBONATE
     Indication: MINERAL SUPPLEMENTATION
     Dosage: ONGOING
     Route: 065
     Dates: start: 20180117
  5. FLUDARABINE [Suspect]
     Active Substance: FLUDARABINE PHOSPHATE
     Indication: PLASMA CELL MYELOMA
     Route: 042
     Dates: start: 20200826, end: 20200828
  6. CYCLOPHOSPHAMIDE. [Suspect]
     Active Substance: CYCLOPHOSPHAMIDE
     Indication: PLASMA CELL MYELOMA
     Route: 042
     Dates: start: 20200826, end: 20200828
  7. PARACETAMOL [Concomitant]
     Active Substance: ACETAMINOPHEN
     Indication: BONE PAIN
     Dosage: ONGOING
     Route: 065
     Dates: start: 20190920
  8. FAMOTIDINE. [Concomitant]
     Active Substance: FAMOTIDINE
     Indication: VOMITING
     Dosage: ONGOING
     Route: 065
     Dates: start: 20190926
  9. ACICLOVIR [Concomitant]
     Active Substance: ACYCLOVIR
     Indication: ANTIVIRAL PROPHYLAXIS
     Dosage: ONGOING
     Route: 065
     Dates: start: 20170510
  10. GABAPENTIN. [Concomitant]
     Active Substance: GABAPENTIN
     Indication: PERIPHERAL SENSORY NEUROPATHY
     Dosage: ONGOING
     Route: 065
     Dates: start: 20170810

REACTIONS (2)
  - Sepsis [Not Recovered/Not Resolved]
  - Leukaemia [Not Recovered/Not Resolved]

NARRATIVE: CASE EVENT DATE: 20210608
